FAERS Safety Report 7382033-9 (Version None)
Quarter: 2011Q1

REPORT INFORMATION
  Report Type: 
  Country: None (occurrence: None)
  Receive Date: 20110329
  Receipt Date: 20110324
  Transmission Date: 20110831
  Serious: Yes (Hospitalization, Other)
  Sender: FDA-Public Use
  Company Number: US-PFIZER INC-2010182454

PATIENT
  Sex: Female

DRUGS (11)
  1. ACETAMINOPHEN W/ CODEINE [Concomitant]
     Indication: PAIN
     Dosage: UNK
     Dates: start: 20041201, end: 20080701
  2. METHYLPREDNISOLONE [Concomitant]
     Dosage: UNK
     Dates: start: 20041201, end: 20091001
  3. PROPOXYPHENE NAPSYLATE W/ ACETAMINOPHEN [Concomitant]
     Indication: PAIN
     Dosage: UNK
     Dates: start: 20050301, end: 20080701
  4. CYCLOBENZAPRINE [Concomitant]
     Indication: MUSCLE RELAXANT THERAPY
     Dosage: UNK
     Dates: start: 20050101
  5. SERTRALINE [Concomitant]
     Indication: DEPRESSION
     Dosage: UNK
     Dates: start: 20071101, end: 20080501
  6. MEDROXYPROGESTERONE [Concomitant]
     Indication: VAGINAL HAEMORRHAGE
     Dosage: UNK
     Dates: start: 20030201, end: 20090601
  7. TRAZODONE [Concomitant]
     Indication: INSOMNIA
     Dosage: UNK
     Dates: start: 20060201, end: 20091101
  8. CHANTIX [Suspect]
     Indication: SMOKING CESSATION THERAPY
     Dosage: STARTER PACK AND CONTINUING PACKS
     Dates: start: 20080301, end: 20080601
  9. TRAMADOL [Concomitant]
     Indication: PAIN
     Dosage: UNK
     Dates: start: 20060101
  10. ACETAMINOPHEN AND HYDROCODONE BITARTRATE [Concomitant]
     Indication: PAIN
     Dosage: UNK
     Dates: start: 20060201, end: 20091001
  11. WELLBUTRIN [Concomitant]
     Indication: SMOKING CESSATION THERAPY
     Dosage: UNK
     Dates: start: 20030201, end: 20091201

REACTIONS (8)
  - LOSS OF CONSCIOUSNESS [None]
  - ANXIETY [None]
  - COGNITIVE DISORDER [None]
  - MENTAL DISORDER [None]
  - CONFUSIONAL STATE [None]
  - DEPRESSION [None]
  - SUICIDAL IDEATION [None]
  - AMNESIA [None]
